FAERS Safety Report 8974901 (Version 1)
Quarter: 2012Q4

REPORT INFORMATION
  Report Type: Spontaneous
  Country: US (occurrence: None)
  Receive Date: 20121218
  Receipt Date: 20121218
  Transmission Date: 20130627
  Serious: No
  Sender: FDA-Public Use
  Company Number: None

PATIENT
  Sex: Female
  Weight: 77.11 kg

DRUGS (3)
  1. BUPROPRION XL 300MG [Suspect]
     Indication: MAJOR DEPRESSIVE DISORDER NOS
     Dates: start: 20120701, end: 20121101
  2. BUPROPRION XL 300MG [Suspect]
     Indication: ADHD
     Dates: start: 20120701, end: 20121101
  3. BUPROPRION XL 300MG [Suspect]
     Indication: FEELING SAD
     Dates: start: 20120701, end: 20121101

REACTIONS (3)
  - Mood altered [None]
  - Agitation [None]
  - Product substitution issue [None]
